FAERS Safety Report 8016403-2 (Version None)
Quarter: 2011Q4

REPORT INFORMATION
  Report Type: 
  Country: None (occurrence: None)
  Receive Date: 20111230
  Receipt Date: 20111221
  Transmission Date: 20120403
  Serious: Yes (Death, Other)
  Sender: FDA-Public Use
  Company Number: DE-ELI_LILLY_AND_COMPANY-DE201112005828

PATIENT
  Age: 71 Year
  Sex: Female

DRUGS (6)
  1. DIAZEPAM [Concomitant]
     Indication: BIPOLAR DISORDER
  2. HALDOL [Concomitant]
     Indication: BIPOLAR DISORDER
     Dosage: UNK
     Dates: end: 20110610
  3. LITHIUM CARBONATE [Concomitant]
     Indication: BIPOLAR DISORDER
     Dosage: UNK
     Dates: end: 20110610
  4. ZYPREXA [Suspect]
     Indication: BIPOLAR DISORDER
     Dosage: 10 MG, UNK
     Route: 048
     Dates: start: 20110608, end: 20110619
  5. LITHIUM [Concomitant]
     Indication: BIPOLAR DISORDER
  6. LORAZEPAM [Concomitant]
     Indication: BIPOLAR DISORDER

REACTIONS (6)
  - PULMONARY EMBOLISM [None]
  - COMA [None]
  - GAIT DISTURBANCE [None]
  - APHAGIA [None]
  - STATUS EPILEPTICUS [None]
  - DEHYDRATION [None]
